FAERS Safety Report 5119691-5 (Version None)
Quarter: 2006Q4

REPORT INFORMATION
  Report Type: 
  Country: None (occurrence: None)
  Receive Date: 20061003
  Receipt Date: 20060921
  Transmission Date: 20070319
  Serious: Yes (Other)
  Sender: FDA-Public Use
  Company Number: PHEH2006US12059

PATIENT
  Age: 63 Year
  Sex: Female

DRUGS (10)
  1. LOTREL [Suspect]
     Indication: HYPERTENSION
     Dosage: 5/20 MG, QD
     Route: 048
     Dates: start: 20010101
  2. CELEBREX [Concomitant]
  3. LYRICA [Concomitant]
  4. ZYRTEC [Concomitant]
  5. PREVACID [Concomitant]
  6. LORAZEPAM [Concomitant]
  7. FLUCONAZOLE [Concomitant]
  8. ZOLOFT [Concomitant]
  9. LOVASTATIN [Concomitant]
  10. MIRTAZAPINE [Concomitant]

REACTIONS (2)
  - DYSPHONIA [None]
  - THROAT CANCER [None]
